FAERS Safety Report 9739505 (Version 2)
Quarter: 2013Q4

REPORT INFORMATION
  Report Type: Report from Study
  Country: DE (occurrence: DE)
  Receive Date: 20131209
  Receipt Date: 20131209
  Transmission Date: 20140711
  Serious: Yes (Death)
  Sender: FDA-Public Use
  Company Number: DE-BEH-2013037886

PATIENT
  Age: 76 Year
  Sex: Female
  Weight: 60 kg

DRUGS (6)
  1. PRIVIGEN [Suspect]
     Dosage: INFUSION RATE: MIN. 50, MAX. 75 ML/MIN
     Route: 041
     Dates: start: 20130110, end: 20130110
  2. PRIVIGEN [Suspect]
     Indication: NON-HODGKIN^S LYMPHOMA
     Dosage: INFUSION RATE: MIN. 50, MAX. 75 ML/MIN
     Route: 041
     Dates: start: 20130207, end: 20130207
  3. PRIVIGEN [Suspect]
     Dosage: INFUSION RATE: MIN. 50, MAX. 75 ML/MIN
     Route: 041
     Dates: start: 20130307, end: 20130307
  4. PRIVIGEN [Suspect]
     Dosage: INFUSION RATE: MIN. 50, MAX. 75 ML/MIN
     Route: 041
     Dates: start: 20130403, end: 20130403
  5. SELEN [Concomitant]
  6. FOLIC ACID [Concomitant]

REACTIONS (4)
  - Pneumonia [Fatal]
  - Bronchitis [Unknown]
  - Upper respiratory tract infection [Unknown]
  - Bronchitis [Unknown]
